FAERS Safety Report 7491082-1 (Version None)
Quarter: 2011Q2

REPORT INFORMATION
  Report Type: 
  Country: None (occurrence: None)
  Receive Date: 20110518
  Receipt Date: 20110518
  Transmission Date: 20111010
  Serious: Yes (Hospitalization)
  Sender: FDA-Public Use
  Company Number: None

PATIENT
  Age: 2 Year
  Sex: Male
  Weight: 16 kg

DRUGS (1)
  1. ACETAMINOPHEN AND CODEINE PHOSPHATE [Suspect]
     Indication: POSTOPERATIVE ANALGESIA
     Dosage: 6ML EVERY 4 HOURS PO
     Route: 048
     Dates: start: 20110420, end: 20110421

REACTIONS (11)
  - DECREASED APPETITE [None]
  - LUNG INFILTRATION [None]
  - MIOSIS [None]
  - DECREASED ACTIVITY [None]
  - CYANOSIS [None]
  - RESPIRATORY RATE DECREASED [None]
  - STRIDOR [None]
  - UNRESPONSIVE TO STIMULI [None]
  - PUPIL FIXED [None]
  - RESPIRATION ABNORMAL [None]
  - TACHYPNOEA [None]
